FAERS Safety Report 5835461-4 (Version None)
Quarter: 2008Q3

REPORT INFORMATION
  Report Type: 
  Country: None (occurrence: None)
  Receive Date: 20080804
  Receipt Date: 20080722
  Transmission Date: 20090109
  Serious: Yes (Hospitalization)
  Sender: FDA-Public Use
  Company Number: 2008S1007299

PATIENT
  Age: 61 Year
  Sex: Female
  Weight: 66.2252 kg

DRUGS (11)
  1. PHOSPHOSODA GINGER LEMON [Suspect]
     Indication: COLONOSCOPY
     Dosage: 45 ML; ;PO
     Route: 048
     Dates: start: 20080305, end: 20080305
  2. DULCOLAX [Suspect]
     Dosage: 2 UNIT;X1;PO
     Route: 048
     Dates: start: 20080305, end: 20080305
  3. PHOSPHOSODA GINGER LEMON [Suspect]
     Indication: COLONOSCOPY
     Dosage: 45 ML; ;PO
     Route: 048
     Dates: start: 20080305, end: 20080305
  4. ASPIRIN [Concomitant]
  5. CRESTOR [Concomitant]
  6. AMBIEN [Concomitant]
  7. GLYBURIDE [Concomitant]
  8. LOTENSIN [Concomitant]
  9. METFORMIN HCL [Concomitant]
  10. METFORMIN HCL [Concomitant]
  11. DILACOR XR [Concomitant]

REACTIONS (3)
  - ANAEMIA [None]
  - COLONIC POLYP [None]
  - RENAL FAILURE ACUTE [None]
